FAERS Safety Report 8340915-5 (Version None)
Quarter: 2012Q2

REPORT INFORMATION
  Report Type: 
  Country: None (occurrence: None)
  Receive Date: 20120507
  Receipt Date: 20120430
  Transmission Date: 20120825
  Serious: Yes (Other)
  Sender: FDA-Public Use
  Company Number: PHHY2012DK037330

PATIENT
  Age: 5 Year
  Sex: Male

DRUGS (1)
  1. RITALIN [Suspect]
     Indication: ATTENTION DEFICIT/HYPERACTIVITY DISORDER

REACTIONS (7)
  - FEAR [None]
  - PERSONALITY CHANGE [None]
  - ANXIETY [None]
  - SOCIAL AVOIDANT BEHAVIOUR [None]
  - PALLOR [None]
  - APATHY [None]
  - SOCIAL FEAR [None]
